FAERS Safety Report 4395643-8 (Version None)
Quarter: 2004Q3

REPORT INFORMATION
  Report Type: 
  Country: None (occurrence: None)
  Receive Date: 20040709
  Receipt Date: 20040628
  Transmission Date: 20050211
  Serious: Yes (Death)
  Sender: FDA-Public Use
  Company Number: US-JNJFOC-20040503111

PATIENT
  Age: 83 Year
  Sex: Male

DRUGS (7)
  1. REMINYL [Suspect]
     Dosage: 8 MG, 1 IN 1 DAY, ORAL
     Route: 048
  2. ATICAND (CANDESARTAN CILEXETIL) UNSPECIFIED [Concomitant]
  3. ... [Concomitant]
  4. PREDNISONE [Concomitant]
  5. PRAVACHOL (PRAVASTATIN SODIUM) UNSPECIFIED [Concomitant]
  6. LABETALOLO (LABETALOL) [Concomitant]
  7. ALBUTEROL (SALBUTAMOL) SPRAY [Concomitant]

REACTIONS (15)
  - ABASIA [None]
  - ABDOMINAL TENDERNESS [None]
  - BACK PAIN [None]
  - BLADDER OBSTRUCTION [None]
  - BLOOD PRESSURE INCREASED [None]
  - CHEST WALL PAIN [None]
  - CHEST X-RAY ABNORMAL [None]
  - CHRONIC OBSTRUCTIVE AIRWAYS DISEASE EXACERBATED [None]
  - FLANK PAIN [None]
  - LUNG HYPERINFLATION [None]
  - LYMPHADENOPATHY [None]
  - METASTASES TO BONE [None]
  - METASTATIC RENAL CELL CARCINOMA [None]
  - RENAL CYST [None]
  - URINARY RETENTION [None]
